FAERS Safety Report 7782609-0 (Version None)
Quarter: 2011Q3

REPORT INFORMATION
  Report Type: 
  Country: None (occurrence: None)
  Receive Date: 20110926
  Receipt Date: 20110910
  Transmission Date: 20111222
  Serious: Yes (Other)
  Sender: FDA-Public Use
  Company Number: 2011AP002090

PATIENT
  Age: 68 Year
  Sex: Male

DRUGS (3)
  1. LEFLUNOMIDE [Suspect]
     Indication: RHEUMATOID ARTHRITIS
  2. PREDNISONE [Suspect]
     Indication: RHEUMATOID ARTHRITIS
  3. METHOTREXATE [Suspect]
     Indication: RHEUMATOID ARTHRITIS

REACTIONS (1)
  - HISTOPLASMOSIS [None]
